FAERS Safety Report 7177810-3 (Version None)
Quarter: 2010Q4

REPORT INFORMATION
  Report Type: 
  Country: None (occurrence: None)
  Receive Date: 20101220
  Receipt Date: 20101207
  Transmission Date: 20110411
  Serious: Yes (Other)
  Sender: FDA-Public Use
  Company Number: PHHY2010US66504

PATIENT
  Sex: Female
  Weight: 164 kg

DRUGS (3)
  1. ZOMETA [Suspect]
     Dosage: UNK
     Route: 042
     Dates: start: 20100728
  2. ZOMETA [Suspect]
     Dosage: 04 MG /MONTHLY
     Route: 042
     Dates: start: 20061101, end: 20100501
  3. TAXOL [Concomitant]
     Dosage: 80 MG/WEEKLY
     Dates: start: 20090401

REACTIONS (1)
  - OSTEONECROSIS OF JAW [None]
